FAERS Safety Report 8593596-X (Version None)
Quarter: 2012Q3

REPORT INFORMATION
  Report Type: 
  Country: None (occurrence: None)
  Receive Date: 20120814
  Receipt Date: 20120713
  Transmission Date: 20120928
  Serious: No
  Sender: FDA-Public Use
  Company Number: US-ASTRAZENECA-2012SE38026

PATIENT
  Age: 87 Year
  Sex: Male
  Weight: 102.1 kg

DRUGS (11)
  1. COUMADIN [Concomitant]
  2. AMARYL [Concomitant]
  3. FML [Concomitant]
  4. ZOCOR [Concomitant]
  5. AMLODIPINE BESYLATE AND BENAZEPRIL HCL [Concomitant]
  6. OMEPRAZOLE [Suspect]
     Route: 048
  7. GLUCOTROL [Concomitant]
  8. FLUNISOLIDE [Concomitant]
  9. LOSARTAN POTASSIUM [Concomitant]
  10. LASIX [Concomitant]
  11. SYMBICORT [Suspect]
     Dosage: 160/4.5 MCG, TWO TIMES A DAY
     Route: 055
     Dates: start: 20111201, end: 20120501

REACTIONS (1)
  - DYSPNOEA [None]
